FAERS Safety Report 11391987 (Version 1)
Quarter: 2015Q3

REPORT INFORMATION
  Report Type: Report from Study
  Country: US (occurrence: US)
  Receive Date: 20150818
  Receipt Date: 20150818
  Transmission Date: 20151125
  Serious: Yes (Other)
  Sender: FDA-Public Use
  Company Number: US-ABBVIE-15P-163-1444012-00

PATIENT
  Age: 39 Year
  Sex: Female

DRUGS (3)
  1. LUPRON DEPOT [Suspect]
     Active Substance: LEUPROLIDE ACETATE
     Indication: ENDOMETRIOSIS
     Dosage: FOR 6-12 MONTHS
     Route: 050
  2. CALCIUM [Concomitant]
     Active Substance: CALCIUM
     Indication: BONE DENSITY DECREASED
     Route: 048
     Dates: start: 201506
  3. LUPRON DEPOT [Suspect]
     Active Substance: LEUPROLIDE ACETATE
     Indication: ENDOMETRIOSIS
     Route: 050
     Dates: start: 20150601

REACTIONS (12)
  - Weight increased [Unknown]
  - Endometriosis [Unknown]
  - Road traffic accident [Recovering/Resolving]
  - Nausea [Recovered/Resolved]
  - Hot flush [Recovered/Resolved]
  - Concussion [Recovering/Resolving]
  - Road traffic accident [Recovering/Resolving]
  - Ovarian cyst [Unknown]
  - Blood gases abnormal [Unknown]
  - Concussion [Recovering/Resolving]
  - Decreased appetite [Recovered/Resolved]
  - Dysmenorrhoea [Recovered/Resolved]

NARRATIVE: CASE EVENT DATE: 2012
